FAERS Safety Report 24300150 (Version 3)
Quarter: 2024Q4

REPORT INFORMATION
  Report Type: Report from Study
  Country: CA (occurrence: CA)
  Receive Date: 20240909
  Receipt Date: 20241023
  Transmission Date: 20250115
  Serious: Yes (Death, Hospitalization, Other)
  Sender: TAIHO ONCOLOGY INC
  Company Number: CA-OTSUKA-2024_024982

PATIENT
  Age: 73 Year
  Sex: Male

DRUGS (1)
  1. INQOVI [Suspect]
     Active Substance: CEDAZURIDINE\DECITABINE
     Indication: Chronic myelomonocytic leukaemia
     Dosage: 1 DF (35 MG DECITABINE AND 100 MG CEDAZURIDINE) DAILY ON DAYS 1 THROUGH 5 EVERY 28 DAYS?DAILY DOSE:
     Route: 048

REACTIONS (4)
  - Lung neoplasm malignant [Fatal]
  - Transfusion [Unknown]
  - Gait inability [Unknown]
  - Fall [Unknown]

NARRATIVE: CASE EVENT DATE: 20240801
